FAERS Safety Report 9877848 (Version 1)
Quarter: 2014Q1

REPORT INFORMATION
  Report Type: Spontaneous
  Country: US (occurrence: US)
  Receive Date: 20140206
  Receipt Date: 20140206
  Transmission Date: 20141002
  Serious: Yes (Hospitalization)
  Sender: FDA-Public Use
  Company Number: US-NOVOPROD-399141

PATIENT
  Age: 81 Year
  Sex: Male
  Weight: 86.4 kg

DRUGS (2)
  1. NOVOSEVEN RT [Suspect]
     Indication: ANTI FACTOR VIII ANTIBODY TEST
     Dosage: UNK
     Route: 042
     Dates: start: 201401
  2. NOVOSEVEN RT [Suspect]
     Indication: COMPARTMENT SYNDROME

REACTIONS (1)
  - Haemorrhage [Not Recovered/Not Resolved]
